FAERS Safety Report 8156606-X (Version None)
Quarter: 2012Q1

REPORT INFORMATION
  Report Type: 
  Country: None (occurrence: None)
  Receive Date: 20120216
  Receipt Date: 20120204
  Transmission Date: 20120608
  Serious: Yes (Hospitalization, Other)
  Sender: FDA-Public Use
  Company Number: NSR_00495_2012

PATIENT
  Age: 30 Year
  Sex: Male

DRUGS (5)
  1. METRONIDAZOLE [Concomitant]
  2. DOXYCYCLINE [Concomitant]
  3. METOCLOPRAMIDE [Suspect]
     Indication: NAUSEA
     Dosage: (10 MG BID)
  4. METOCLOPRAMIDE [Suspect]
     Indication: VOMITING
     Dosage: (10 MG BID)
  5. VANCOMYCIN [Concomitant]

REACTIONS (15)
  - TOXICITY TO VARIOUS AGENTS [None]
  - DEPRESSION [None]
  - RESTLESSNESS [None]
  - ALANINE AMINOTRANSFERASE INCREASED [None]
  - AGITATION [None]
  - BLOOD PRESSURE SYSTOLIC INCREASED [None]
  - SUICIDAL IDEATION [None]
  - INSOMNIA [None]
  - HOMICIDAL IDEATION [None]
  - MENTAL DISORDER [None]
  - ANXIETY [None]
  - FEELING ABNORMAL [None]
  - TACHYPHRENIA [None]
  - FLASHBACK [None]
  - BLOOD GLUCOSE INCREASED [None]
